FAERS Safety Report 9999824 (Version 3)
Quarter: 2014Q2

REPORT INFORMATION
  Report Type: Spontaneous
  Country: IT (occurrence: IT)
  Receive Date: 20140312
  Receipt Date: 20140407
  Transmission Date: 20141212
  Serious: Yes (Hospitalization)
  Sender: FDA-Public Use
  Company Number: IT-SA-2014SA026474

PATIENT
  Age: 85 Year
  Sex: Female

DRUGS (4)
  1. KARVEZIDE [Suspect]
     Indication: HYPERTENSION
     Route: 048
     Dates: end: 20140219
  2. FUROSEMIDE [Suspect]
     Indication: URINE OUTPUT DECREASED
     Route: 065
     Dates: start: 201312
  3. FUROSEMIDE [Suspect]
     Indication: URINE OUTPUT DECREASED
     Route: 048
     Dates: start: 20140212, end: 20140219
  4. CARDIOASPIRIN [Concomitant]

REACTIONS (4)
  - Renal failure acute [Recovering/Resolving]
  - Hypokalaemia [Recovering/Resolving]
  - Oedema peripheral [Recovering/Resolving]
  - Overdose [Unknown]
